FAERS Safety Report 16564807 (Version 1)
Quarter: 2019Q3

REPORT INFORMATION
  Report Type: Spontaneous
  Country: US (occurrence: US)
  Receive Date: 20190712
  Receipt Date: 20190712
  Transmission Date: 20191004
  Serious: Yes (Other)
  Sender: FDA-Public Use
  Company Number: US-ADAAP-201900104

PATIENT
  Age: 72 Year
  Sex: Female
  Weight: 48.5 kg

DRUGS (4)
  1. LUTETIUM DOTATATE (LUTETIUM (177LU) OXODOTREOTIDE) [Suspect]
     Active Substance: LUTETIUM OXODOTREOTIDE LU-177
     Indication: CARCINOID TUMOUR OF THE SMALL BOWEL
     Route: 042
     Dates: start: 20181030, end: 20181030
  2. LUTETIUM DOTATATE (LUTETIUM (177LU) OXODOTREOTIDE) [Suspect]
     Active Substance: LUTETIUM OXODOTREOTIDE LU-177
     Indication: CARCINOID TUMOUR OF THE SMALL BOWEL
     Route: 042
     Dates: start: 20190103, end: 20190103
  3. LUTETIUM DOTATATE (LUTETIUM (177LU) OXODOTREOTIDE) [Suspect]
     Active Substance: LUTETIUM OXODOTREOTIDE LU-177
     Indication: CARCINOID TUMOUR OF THE SMALL BOWEL
     Route: 042
     Dates: start: 20190306, end: 20190306
  4. LUTETIUM DOTATATE (LUTETIUM (177LU) OXODOTREOTIDE) [Suspect]
     Active Substance: LUTETIUM OXODOTREOTIDE LU-177
     Indication: CARCINOID TUMOUR OF THE SMALL BOWEL
     Route: 042
     Dates: start: 20190507, end: 20190507

REACTIONS (2)
  - Thrombocytopenia [Not Recovered/Not Resolved]
  - Leukopenia [Not Recovered/Not Resolved]

NARRATIVE: CASE EVENT DATE: 20190130
